FAERS Safety Report 20536056 (Version 2)
Quarter: 2022Q2

REPORT INFORMATION
  Report Type: Spontaneous
  Country: IT (occurrence: IT)
  Receive Date: 20220302
  Receipt Date: 20220414
  Transmission Date: 20220721
  Serious: Yes (Life-Threatening)
  Sender: FDA-Public Use
  Company Number: IT-ASTELLAS-2022US007428

PATIENT
  Age: 62 Year
  Sex: Male

DRUGS (2)
  1. TACROLIMUS [Suspect]
     Active Substance: TACROLIMUS
     Indication: Liver transplant
     Dosage: UNK, UNKNOWN FREQ.
     Route: 065
     Dates: end: 2020
  2. PREDNISONE [Concomitant]
     Active Substance: PREDNISONE
     Indication: Liver transplant
     Dosage: UNK UNK, UNKNOWN FREQ.
     Route: 065

REACTIONS (1)
  - Kaposi sarcoma inflammatory cytokine syndrome [Recovered/Resolved]

NARRATIVE: CASE EVENT DATE: 20200301
